FAERS Safety Report 20738560 (Version 1)
Quarter: 2022Q2

REPORT INFORMATION
  Report Type: Spontaneous
  Country: SG (occurrence: SG)
  Receive Date: 20220422
  Receipt Date: 20220422
  Transmission Date: 20220721
  Serious: Yes (Other)
  Sender: FDA-Public Use
  Company Number: SG-ASTELLAS-2022US014539

PATIENT
  Age: 60 Year

DRUGS (4)
  1. GILTERITINIB [Suspect]
     Active Substance: GILTERITINIB
     Indication: Product used for unknown indication
     Dosage: UNK, UNKNOWN FREQ. (FIRST CYCLE)
     Route: 065
  2. GILTERITINIB [Suspect]
     Active Substance: GILTERITINIB
     Dosage: UNK, UNKNOWN FREQ.(SECOND CYCLE)
     Route: 065
  3. GILTERITINIB [Suspect]
     Active Substance: GILTERITINIB
     Dosage: UNK, UNKNOWN FREQ. (THIRD CYCLE)
     Route: 065
  4. GILTERITINIB [Suspect]
     Active Substance: GILTERITINIB
     Dosage: 120 MG, UNKNOWN FREQ. (4TH CYCLE)
     Route: 065

REACTIONS (3)
  - Blast cell count increased [Unknown]
  - Electrocardiogram QT prolonged [Unknown]
  - Therapy non-responder [Unknown]
